FAERS Safety Report 5098960-1 (Version None)
Quarter: 2006Q3

REPORT INFORMATION
  Report Type: 
  Country: None (occurrence: None)
  Receive Date: 20060907
  Receipt Date: 20060410
  Transmission Date: 20061208
  Serious: Yes (Other)
  Sender: FDA-Public Use
  Company Number: 2006PK00709

PATIENT
  Sex: Female
  Weight: 50 kg

DRUGS (5)
  1. NEXIUM [Suspect]
     Indication: ABDOMINAL PAIN UPPER
     Dosage: 1-2 TABL A DAY
     Route: 048
     Dates: end: 20060201
  2. NEXIUM [Suspect]
     Indication: PROPHYLAXIS
     Dosage: 1-2 TABL A DAY
     Route: 048
     Dates: end: 20060201
  3. URBASON [Concomitant]
     Indication: ASTHMA
     Route: 048
  4. BAMBEC [Concomitant]
     Indication: ASTHMA
     Dosage: 1 TABL A DAY
  5. VIANI [Concomitant]
     Indication: ASTHMA
     Dosage: 1 INHALATION A DAY

REACTIONS (2)
  - HYPOKINESIA [None]
  - MUSCLE ATROPHY [None]
